FAERS Safety Report 8601413-4 (Version None)
Quarter: 2012Q3

REPORT INFORMATION
  Report Type: 
  Country: None (occurrence: None)
  Receive Date: 20120817
  Receipt Date: 20120814
  Transmission Date: 20120928
  Serious: Yes (Death, Other)
  Sender: FDA-Public Use
  Company Number: PHHY2012BR070449

PATIENT
  Sex: Female

DRUGS (6)
  1. FORMOTEROL FUMARATE [Suspect]
     Dosage: (12/400 UG)/ 2 TABLETS A DAY.
  2. SYMBICORT [Suspect]
     Indication: ASTHMA
     Dosage: 1 DF, UNK
  3. ONBREZ [Suspect]
     Indication: ASTHMA
     Dosage: UNK UKN, UNK
  4. ONBREZ [Suspect]
     Dosage: UNK UKN, UNK
  5. ALENIA [Suspect]
     Indication: ASTHMA
     Dosage: 1 DF, UNK
  6. FORMOTEROL FUMARATE [Suspect]
     Indication: ASTHMA
     Dosage: (12/200UG) 2 TABLETS A DAY

REACTIONS (2)
  - EMPHYSEMA [None]
  - DEATH [None]
